FAERS Safety Report 5199562-9 (Version None)
Quarter: 2007Q1

REPORT INFORMATION
  Report Type: 
  Country: None (occurrence: None)
  Receive Date: 20070103
  Receipt Date: 20070103
  Transmission Date: 20070707
  Serious: Yes (Death)
  Sender: FDA-Public Use
  Company Number: None

PATIENT
  Sex: Male
  Weight: 67 kg

DRUGS (2)
  1. CETUXIMAB (ERBITUX; MOAB: C225 CHIMERIC MONOCLONAL ANTIBODY) (IMCLONE/ [Suspect]
     Dosage: 1403 MG
  2. CETUXIMAB (ERBITUX; MOAB: C225 CHIMERIC MONOCLONAL ANTIBODY) (IMCLONE/ [Suspect]

REACTIONS (1)
  - DYSPNOEA [None]
